FAERS Safety Report 9410650 (Version 1)
Quarter: 2013Q3

REPORT INFORMATION
  Report Type: Report from Study
  Country: FR (occurrence: FR)
  Receive Date: 20130719
  Receipt Date: 20130719
  Transmission Date: 20140515
  Serious: Yes (Hospitalization)
  Sender: FDA-Public Use
  Company Number: FR-BAYER-2013-087151

PATIENT
  Age: 62 Year
  Sex: Female

DRUGS (6)
  1. REGORAFENIB [Suspect]
     Indication: RECTAL ADENOCARCINOMA
     Dosage: 120 MG, QD
     Route: 048
     Dates: start: 20130322, end: 20130426
  2. REGORAFENIB [Suspect]
     Indication: RECTAL ADENOCARCINOMA
     Dosage: DAILY DOSE 80 MG
     Route: 048
  3. PREVISCAN [Concomitant]
     Indication: PULMONARY EMBOLISM
     Route: 048
  4. APROVEL [Concomitant]
     Indication: HYPERTENSION
     Route: 048
  5. ESIDREX [Concomitant]
     Indication: HYPERTENSION
     Route: 048
  6. AERIUS [Concomitant]
     Route: 048

REACTIONS (3)
  - Haemoptysis [Recovered/Resolved]
  - Chest pain [Recovered/Resolved]
  - Cough [Recovered/Resolved]
